FAERS Safety Report 14647232 (Version 1)
Quarter: 2018Q1

REPORT INFORMATION
  Report Type: Spontaneous
  Country: US (occurrence: US)
  Receive Date: 20180316
  Receipt Date: 20180316
  Transmission Date: 20180509
  Serious: No
  Sender: FDA-Public Use
  Company Number: US-PFIZER INC-2018106381

PATIENT

DRUGS (1)
  1. ZITHROMAX [Suspect]
     Active Substance: AZITHROMYCIN DIHYDRATE
     Indication: PSEUDOMONAS INFECTION
     Dosage: UNK

REACTIONS (2)
  - Malaise [Recovering/Resolving]
  - Wheezing [Recovering/Resolving]
